FAERS Safety Report 8402631-0 (Version None)
Quarter: 2012Q2

REPORT INFORMATION
  Report Type: 
  Country: None (occurrence: None)
  Receive Date: 20120601
  Receipt Date: 20120529
  Transmission Date: 20120825
  Serious: Yes (Death)
  Sender: FDA-Public Use
  Company Number: PHHY2011JP103481

PATIENT
  Age: 72 Year
  Sex: Female

DRUGS (5)
  1. PREDNISOLONE [Concomitant]
     Indication: POST TRANSPLANT LYMPHOPROLIFERATIVE DISORDER
     Dosage: 1-2 MG/KG/DAY
     Route: 048
  2. VINCRISTINE SULFATE [Concomitant]
     Dosage: 1.4 MG/M^2 ON DAY 1
  3. SANDIMMUNE [Suspect]
     Indication: POST TRANSPLANT LYMPHOPROLIFERATIVE DISORDER
     Dosage: 3 MG/KG, UNK
     Route: 048
  4. DOXORUBICIN HYDROCHLORIDE [Concomitant]
     Indication: POST TRANSPLANT LYMPHOPROLIFERATIVE DISORDER
     Dosage: 50 MG/M^2 ON DAY 1
  5. CYCLOPHOSPHAMIDE [Concomitant]
     Dosage: 750 MG/M^2 ON DAY 1

REACTIONS (3)
  - DISEASE PROGRESSION [None]
  - NEUTROPENIA [None]
  - MULTI-ORGAN FAILURE [None]
